FAERS Safety Report 13301686 (Version 1)
Quarter: 2017Q1

REPORT INFORMATION
  Report Type: Spontaneous
  Country: US (occurrence: US)
  Receive Date: 20170306
  Receipt Date: 20170306
  Transmission Date: 20170428
  Serious: No
  Sender: FDA-Public Use
  Company Number: None

PATIENT
  Age: 57 Year

DRUGS (1)
  1. AMPYRA [Suspect]
     Active Substance: DALFAMPRIDINE
     Dates: start: 20160209

REACTIONS (2)
  - Throat tightness [None]
  - Laryngeal disorder [None]

NARRATIVE: CASE EVENT DATE: 20170303
